FAERS Safety Report 15699876 (Version 1)
Quarter: 2018Q4

REPORT INFORMATION
  Report Type: Report from Study
  Country: DE (occurrence: DE)
  Receive Date: 20181207
  Receipt Date: 20181207
  Transmission Date: 20190205
  Serious: Yes (Other)
  Sender: FDA-Public Use
  Company Number: DE-SA-2018SA326345

PATIENT
  Age: 40 Year
  Sex: Male
  Weight: 59 kg

DRUGS (3)
  1. TOUJEO [Concomitant]
     Active Substance: INSULIN GLARGINE
     Dosage: 14 IU, QD
     Dates: start: 201706
  2. INSULIN GLARGINE [Suspect]
     Active Substance: INSULIN GLARGINE
     Indication: TYPE 1 DIABETES MELLITUS
     Dosage: 0.5 IU/KG, QD
     Route: 058
     Dates: start: 20180914, end: 20180916
  3. NOVORAPID [Concomitant]
     Active Substance: INSULIN ASPART
     Dosage: 24 IU, QD
     Dates: start: 2008

REACTIONS (7)
  - Generalised tonic-clonic seizure [Recovered/Resolved]
  - Limb discomfort [Unknown]
  - Blood fibrinogen decreased [Unknown]
  - Palpitations [Unknown]
  - Loss of consciousness [Unknown]
  - Fall [Unknown]
  - Hypokalaemia [Unknown]

NARRATIVE: CASE EVENT DATE: 20180915
